FAERS Safety Report 7968991-X (Version None)
Quarter: 2011Q4

REPORT INFORMATION
  Report Type: 
  Country: None (occurrence: None)
  Receive Date: 20111209
  Receipt Date: 20111202
  Transmission Date: 20120403
  Serious: Yes (Other)
  Sender: FDA-Public Use
  Company Number: US-US-EMD SERONO, INC.-7009284

PATIENT
  Sex: Female
  Weight: 122 kg

DRUGS (5)
  1. REBIF [Suspect]
     Indication: MULTIPLE SCLEROSIS
     Route: 058
     Dates: start: 20060920
  2. NEURONTIN [Concomitant]
     Indication: PAIN
     Route: 048
     Dates: start: 20070612
  3. PAXIL [Concomitant]
     Indication: DEPRESSION
     Dates: start: 20080612
  4. REQUIP [Concomitant]
     Indication: RESTLESS LEGS SYNDROME
     Route: 048
     Dates: start: 20060602
  5. CELEBREX [Concomitant]
     Indication: OSTEOARTHRITIS
     Dates: start: 20080723

REACTIONS (2)
  - INJECTION SITE ERYTHEMA [None]
  - MENORRHAGIA [None]
